FAERS Safety Report 11867461 (Version 5)
Quarter: 2016Q2

REPORT INFORMATION
  Report Type: Report from Study
  Country: RU (occurrence: RU)
  Receive Date: 20151224
  Receipt Date: 20160404
  Transmission Date: 20160815
  Serious: Yes (Hospitalization)
  Sender: FDA-Public Use
  Company Number: RU-PFIZER INC-2015457747

PATIENT
  Age: 54 Year
  Sex: Female
  Weight: 67.1 kg

DRUGS (9)
  1. TOFACITINIB CITRATE [Suspect]
     Active Substance: TOFACITINIB CITRATE
     Indication: RHEUMATOID ARTHRITIS
     Dosage: 10 MG, 2X/DAY
     Route: 048
     Dates: start: 20100412, end: 20151217
  2. ESOMEPRAZOLE [Concomitant]
     Active Substance: ESOMEPRAZOLE
     Indication: CHRONIC GASTRITIS
     Dosage: 40 MG, 1X/DAY
     Route: 048
     Dates: start: 20151116
  3. PENTOXIFYLLINE. [Concomitant]
     Active Substance: PENTOXIFYLLINE
     Indication: POLYNEUROPATHY
     Dosage: 100 MG, 3X/DAY
     Route: 048
     Dates: start: 20151116, end: 20160206
  4. DICLOFENAC RETARD [Concomitant]
     Indication: RHEUMATOID ARTHRITIS
     Dosage: 100 MG, 2X/DAY
     Route: 048
     Dates: start: 200905
  5. DABIGATRAN [Concomitant]
     Active Substance: DABIGATRAN
     Indication: VENOUS THROMBOSIS
     Dosage: 150 MG, BID
     Route: 048
     Dates: start: 20150922
  6. FERRETAB COMP [Concomitant]
     Indication: ANAEMIA PROPHYLAXIS
     Dosage: 1 CAP QD
     Route: 048
     Dates: start: 20141003
  7. DIOSMIN [Concomitant]
     Active Substance: DIOSMIN
     Indication: VENOUS THROMBOSIS
     Dosage: 600 MG, 1X/DAY
     Route: 048
     Dates: start: 20150922, end: 20160214
  8. VITRUM CARDIO OMEGA 3 [Concomitant]
     Indication: DYSLIPIDAEMIA
     Dosage: 1 CAP QD
     Route: 048
     Dates: start: 20150331
  9. METHYLPREDNISOLONE. [Suspect]
     Active Substance: METHYLPREDNISOLONE
     Indication: RHEUMATOID ARTHRITIS
     Dosage: 8 MG, 1X/DAY
     Route: 048
     Dates: start: 200906

REACTIONS (1)
  - Osteomyelitis [Recovered/Resolved]

NARRATIVE: CASE EVENT DATE: 20151216
